FAERS Safety Report 4279412-5 (Version None)
Quarter: 2004Q1

REPORT INFORMATION
  Report Type: 
  Country: None (occurrence: None)
  Receive Date: 20040127
  Receipt Date: 20030917
  Transmission Date: 20041129
  Serious: No
  Sender: FDA-Public Use
  Company Number: US-BRISTOL-MYERS SQUIBB COMPANY-12386595

PATIENT
  Age: 25 Year
  Sex: Female
  Weight: 63 kg

DRUGS (1)
  1. DOVONEX [Suspect]
     Indication: ECZEMA
     Route: 061
     Dates: start: 20030916, end: 20030916

REACTIONS (2)
  - BURNING SENSATION [None]
  - PRURITUS [None]
